FAERS Safety Report 16346012 (Version 1)
Quarter: 2019Q2

REPORT INFORMATION
  Report Type: Spontaneous
  Country: FI (occurrence: FI)
  Receive Date: 20190523
  Receipt Date: 20190523
  Transmission Date: 20190711
  Serious: Yes (Life-Threatening, Hospitalization, Other)
  Sender: FDA-Public Use
  Company Number: FI-GLAXOSMITHKLINE-FI2019GSK088444

PATIENT
  Age: 16 Year
  Sex: Female

DRUGS (6)
  1. MESALAZINE [Concomitant]
     Active Substance: MESALAMINE
     Indication: COLITIS ULCERATIVE
  2. AZATHIOPRINE. [Suspect]
     Active Substance: AZATHIOPRINE
     Indication: COLITIS ULCERATIVE
     Dosage: 2.5 MG/KG, UNK
  3. PREDNISOLONE. [Concomitant]
     Active Substance: PREDNISOLONE
     Indication: COLITIS ULCERATIVE
     Dosage: UNK
  4. PREDNISOLONE. [Concomitant]
     Active Substance: PREDNISOLONE
     Indication: CROHN^S DISEASE
  5. ACYCLOVIR. [Suspect]
     Active Substance: ACYCLOVIR
     Indication: EPSTEIN-BARR VIRUS INFECTION
  6. MESALAZINE [Concomitant]
     Active Substance: MESALAMINE
     Indication: CROHN^S DISEASE

REACTIONS (22)
  - Ill-defined disorder [Recovered/Resolved]
  - Pneumonitis [Recovered/Resolved]
  - White blood cell count decreased [Recovered/Resolved]
  - Platelet count decreased [Recovered/Resolved]
  - Cardiac failure acute [Recovered/Resolved]
  - Respiratory failure [Recovered/Resolved]
  - Epstein-Barr virus infection [Recovered/Resolved]
  - General physical health deterioration [Recovered/Resolved]
  - Cytopenia [Recovered/Resolved]
  - Haemoglobin decreased [Recovered/Resolved]
  - Splenomegaly [Recovered/Resolved]
  - Viral load increased [Recovered/Resolved]
  - Multiple organ dysfunction syndrome [Recovered/Resolved]
  - Natural killer cell count decreased [Recovered/Resolved]
  - Acute hepatic failure [Recovered/Resolved]
  - Hepatic necrosis [Recovered/Resolved]
  - Drug ineffective [Unknown]
  - Pyrexia [Recovered/Resolved]
  - Hepatitis [Recovered/Resolved]
  - Inflammatory marker increased [Recovered/Resolved]
  - Viraemia [Recovered/Resolved]
  - Secondary immunodeficiency [Recovered/Resolved]
